FAERS Safety Report 13417873 (Version 1)
Quarter: 2017Q2

REPORT INFORMATION
  Report Type: Report from Study
  Country: US (occurrence: BR)
  Receive Date: 20170407
  Receipt Date: 20170407
  Transmission Date: 20170830
  Serious: Yes (Life-Threatening, Other)
  Sender: FDA-Public Use
  Company Number: US-SUNOVION-2017SUN001476

PATIENT
  Sex: Male

DRUGS (8)
  1. APROZIDE [Concomitant]
     Active Substance: HYDROCHLOROTHIAZIDE\IRBESARTAN
     Dosage: UNKNOWN
  2. INDACATEROL AND GLYCOPYRROLATE [Suspect]
     Active Substance: GLYCOPYRROLATE\INDACATEROL MALEATE
     Indication: GASTROOESOPHAGEAL REFLUX DISEASE
     Dosage: 1 DF, QD ( 50MCG/110MG)
     Route: 055
  3. MOTILIUM [Concomitant]
     Active Substance: DOMPERIDONE
     Dosage: UNKNOWN
  4. NASONEX [Concomitant]
     Active Substance: MOMETASONE FUROATE
     Dosage: UNKNOWN
  5. FORASEQ [Concomitant]
     Active Substance: BUDESONIDE\FORMOTEROL FUMARATE
     Dosage: UNK
     Route: 055
  6. OXIMAX [Concomitant]
     Active Substance: MOMETASONE FUROATE
     Dosage: UNKNOWN
  7. AMLODIPINE [Concomitant]
     Active Substance: AMLODIPINE BESYLATE
     Dosage: UNKNOWN
  8. INDACATEROL AND GLYCOPYRROLATE [Suspect]
     Active Substance: GLYCOPYRROLATE\INDACATEROL MALEATE
     Indication: PNEUMONIA

REACTIONS (9)
  - Apparent death [Unknown]
  - Oesophageal achalasia [Unknown]
  - Pneumonitis [Recovered/Resolved]
  - Musculoskeletal discomfort [Unknown]
  - Loss of consciousness [Unknown]
  - Reflux gastritis [Unknown]
  - Off label use [Unknown]
  - Pneumonia [Recovered/Resolved]
  - Body height decreased [Unknown]
